FAERS Safety Report 11092112 (Version 1)
Quarter: 2015Q2

REPORT INFORMATION
  Report Type: Spontaneous
  Country: PL (occurrence: PL)
  Receive Date: 20150505
  Receipt Date: 20150505
  Transmission Date: 20150821
  Serious: Yes (Other)
  Sender: FDA-Public Use
  Company Number: PHHY2015PL052612

PATIENT
  Age: 34 Year
  Sex: Female

DRUGS (4)
  1. VENLAFAXINE [Suspect]
     Active Substance: VENLAFAXINE HYDROCHLORIDE
     Indication: DEPRESSION
     Dosage: 75 G, QD
     Route: 065
  2. VENLAFAXINE [Suspect]
     Active Substance: VENLAFAXINE HYDROCHLORIDE
     Dosage: 37.5 MG, UNK
     Route: 065
  3. OLANZAPINE. [Suspect]
     Active Substance: OLANZAPINE
     Indication: DEPRESSION
     Dosage: 25 MG, QD
     Route: 065
  4. N-METHYLSARCOSINE [Concomitant]
     Indication: PRODUCT USED FOR UNKNOWN INDICATION
     Dosage: 2 G, QD
     Route: 065

REACTIONS (6)
  - Libido increased [Recovering/Resolving]
  - Insomnia [Recovering/Resolving]
  - Psychomotor hyperactivity [Recovering/Resolving]
  - Logorrhoea [Recovering/Resolving]
  - Hypomania [Recovering/Resolving]
  - Elevated mood [Recovering/Resolving]
